FAERS Safety Report 7334808-X (Version None)
Quarter: 2011Q1

REPORT INFORMATION
  Report Type: 
  Country: None (occurrence: None)
  Receive Date: 20110307
  Receipt Date: 20110302
  Transmission Date: 20110831
  Serious: Yes (Life-Threatening, Disabling, Other)
  Sender: FDA-Public Use
  Company Number: PHHY2011JP10585

PATIENT
  Sex: Male

DRUGS (55)
  1. NEORAL [Suspect]
     Dosage: 75 MG, UNK
     Route: 048
     Dates: start: 20000420, end: 20000420
  2. NEORAL [Suspect]
     Dosage: 85 MG, UNK
     Route: 048
     Dates: start: 20000504, end: 20000505
  3. NEORAL [Suspect]
     Dosage: 180 MG, UNK
     Route: 048
     Dates: start: 20000701, end: 20000702
  4. NEORAL [Suspect]
     Dosage: 300 MG, UNK
     Route: 048
     Dates: start: 20000727, end: 20000727
  5. NEORAL [Suspect]
     Dosage: 400 MG, UNK
     Route: 048
     Dates: start: 20010328, end: 20010501
  6. NEORAL [Suspect]
     Dosage: 80 MG, UNK
     Route: 048
     Dates: start: 20000503, end: 20000503
  7. NEORAL [Suspect]
     Dosage: 135 MG, UNK
     Route: 048
     Dates: start: 20000512, end: 20000514
  8. NEORAL [Suspect]
     Dosage: 150 MG, UNK
     Route: 048
     Dates: start: 20000516, end: 20000524
  9. NEORAL [Suspect]
     Dosage: 150 MG, UNK
     Route: 048
     Dates: start: 20000628, end: 20000628
  10. NEORAL [Suspect]
     Dosage: 50 MG, UNK
     Route: 048
     Dates: start: 20000411, end: 20000412
  11. NEORAL [Suspect]
     Dosage: 45 MG, UNK
     Route: 048
     Dates: start: 20000414, end: 20000414
  12. NEORAL [Suspect]
     Dosage: 100 MG, UNK
     Route: 048
     Dates: start: 20000425, end: 20000425
  13. NEORAL [Suspect]
     Dosage: 140 MG, UNK
     Route: 048
     Dates: start: 20000515, end: 20000515
  14. NEORAL [Suspect]
     Dosage: 140 MG, UNK
     Route: 048
     Dates: start: 20000526, end: 20000627
  15. NEORAL [Suspect]
     Dosage: 260 MG, UNK
     Route: 048
     Dates: start: 20000807, end: 20000809
  16. NEORAL [Suspect]
     Dosage: 320 MG, UNK
     Route: 048
     Dates: start: 20000830, end: 20000830
  17. NEORAL [Suspect]
     Dosage: 350 MG, UNK
     Route: 048
     Dates: start: 20010503, end: 20010511
  18. NEORAL [Suspect]
     Dosage: 300 MG, UNK
     Route: 048
     Dates: start: 20010512, end: 20010806
  19. AZATHIOPRINE [Concomitant]
     Indication: HEART TRANSPLANT
     Dosage: 20 MG, UNK
     Route: 048
     Dates: start: 20000408
  20. MYCOPHENOLATE MOFETIL [Concomitant]
     Indication: HEART TRANSPLANT
     Dosage: 500 MG, UNK
     Route: 048
     Dates: start: 20000410
  21. NEORAL [Suspect]
     Indication: HEART TRANSPLANT
     Dosage: 10 MG, UNK
     Route: 048
  22. NEORAL [Suspect]
     Dosage: 60 MG, UNK
     Route: 048
     Dates: start: 20000409, end: 20000410
  23. NEORAL [Suspect]
     Dosage: 100 MG, UNK
     Route: 048
     Dates: start: 20000506, end: 20000508
  24. NEORAL [Suspect]
     Dosage: 300 MG, UNK
     Route: 048
     Dates: start: 20000811, end: 20000828
  25. NEORAL [Suspect]
     Dosage: 80 MG, UNK
     Route: 048
     Dates: start: 20000421, end: 20000421
  26. NEORAL [Suspect]
     Dosage: 160 MG, UNK
     Route: 048
     Dates: start: 20000703, end: 20000705
  27. NEORAL [Suspect]
     Dosage: 200 MG, UNK
     Route: 048
     Dates: start: 20000712, end: 20000712
  28. NEORAL [Suspect]
     Dosage: 440 MG, UNK
     Route: 048
     Dates: start: 20010322, end: 20010322
  29. AZATHIOPRINE [Concomitant]
     Dosage: 40 MG, UNK
     Route: 048
  30. AZATHIOPRINE [Concomitant]
     Dosage: 20 MG, UNK
     Route: 048
     Dates: end: 20011015
  31. NEORAL [Suspect]
     Dosage: 20 MG, UNK
     Route: 048
     Dates: start: 20000408
  32. NEORAL [Suspect]
     Dosage: 65 MG, UNK
     Route: 048
     Dates: start: 20000419, end: 20000419
  33. NEORAL [Suspect]
     Dosage: 160 MG, UNK
     Route: 048
     Dates: start: 20000629, end: 20000630
  34. NEORAL [Suspect]
     Dosage: 180 MG, UNK
     Route: 048
     Dates: start: 20000711, end: 20000711
  35. NEORAL [Suspect]
     Dosage: 280 MG, UNK
     Route: 048
     Dates: start: 20000810, end: 20000810
  36. NEORAL [Suspect]
     Dosage: 360 MG, UNK
     Route: 048
     Dates: start: 20000829, end: 20000829
  37. NEORAL [Suspect]
     Dosage: 340 MG, UNK
     Route: 048
     Dates: start: 20000831, end: 20000903
  38. NEORAL [Suspect]
     Dosage: 360 MG, UNK
     Route: 048
     Dates: start: 20000904, end: 20001029
  39. NEORAL [Suspect]
     Dosage: 450 MG, UNK
     Route: 048
     Dates: start: 20010321, end: 20010321
  40. NEORAL [Suspect]
     Dosage: 40 MG, UNK
     Route: 048
     Dates: start: 20000413, end: 20000413
  41. NEORAL [Suspect]
     Dosage: 55 MG, UNK
     Route: 048
     Dates: start: 20000416, end: 20000418
  42. NEORAL [Suspect]
     Dosage: 92 MG, UNK
     Route: 048
     Dates: start: 20000422, end: 20000424
  43. NEORAL [Suspect]
     Dosage: 110 MG, UNK
     Route: 048
     Dates: start: 20000509, end: 20000509
  44. NEORAL [Suspect]
     Dosage: 125 MG, UNK
     Route: 048
     Dates: start: 20000511, end: 20000511
  45. NEORAL [Suspect]
     Dosage: 160 MG, UNK
     Route: 048
     Dates: start: 20000525, end: 20000525
  46. NEORAL [Suspect]
     Dosage: 280 MG, UNK
     Route: 048
     Dates: start: 20000728, end: 20000806
  47. NEORAL [Suspect]
     Dosage: 400 MG, UNK
     Route: 048
     Dates: start: 20010323, end: 20010325
  48. NEORAL [Suspect]
     Dosage: 50 MG, UNK
     Route: 048
     Dates: start: 20000415, end: 20000415
  49. NEORAL [Suspect]
     Dosage: 90 MG, UNK
     Route: 048
     Dates: start: 20000426, end: 20000502
  50. NEORAL [Suspect]
     Dosage: 120 MG, UNK
     Route: 048
     Dates: start: 20000510, end: 20000510
  51. NEORAL [Suspect]
     Dosage: 220 MG, UNK
     Route: 048
     Dates: start: 20000713, end: 20000719
  52. NEORAL [Suspect]
     Dosage: 240 MG, UNK
     Route: 048
     Dates: start: 20000720, end: 20000726
  53. NEORAL [Suspect]
     Dosage: 400 MG, UNK
     Route: 048
     Dates: start: 20001030, end: 20010320
  54. NEORAL [Suspect]
     Dosage: 450 MG, UNK
     Route: 048
     Dates: start: 20010326, end: 20010327
  55. MYCOPHENOLATE MOFETIL [Concomitant]
     Dosage: 250 MG, UNK
     Route: 048
     Dates: end: 20021224

REACTIONS (10)
  - COMPLICATIONS OF TRANSPLANTED HEART [None]
  - RENAL IMPAIRMENT [None]
  - CARDIAC FAILURE [None]
  - LOSS OF CONSCIOUSNESS [None]
  - VENTRICULAR TACHYCARDIA [None]
  - DEVELOPMENTAL DELAY [None]
  - INFECTION [None]
  - POSTRESUSCITATION ENCEPHALOPATHY [None]
  - HYPOXIC-ISCHAEMIC ENCEPHALOPATHY [None]
  - CEREBRAL ATROPHY [None]
